FAERS Safety Report 13133074 (Version 2)
Quarter: 2017Q1

REPORT INFORMATION
  Report Type: Spontaneous
  Country: DE (occurrence: DE)
  Receive Date: 20170120
  Receipt Date: 20170123
  Transmission Date: 20170428
  Serious: Yes (Hospitalization, Other)
  Sender: FDA-Public Use
  Company Number: US-ASTRAZENECA-2017SE05625

PATIENT
  Age: 346 Day
  Sex: Female
  Weight: 5.7 kg

DRUGS (22)
  1. SYNAGIS [Suspect]
     Active Substance: PALIVIZUMAB
     Indication: PREMATURE BABY
     Route: 030
     Dates: start: 20161028, end: 20161028
  2. SYNAGIS [Suspect]
     Active Substance: PALIVIZUMAB
     Indication: TRACHEOSTOMY
     Route: 030
     Dates: start: 20161201, end: 20161201
  3. SYNAGIS [Suspect]
     Active Substance: PALIVIZUMAB
     Indication: ANTIVIRAL PROPHYLAXIS
     Route: 030
     Dates: start: 20161028, end: 20161028
  4. SYNAGIS [Suspect]
     Active Substance: PALIVIZUMAB
     Indication: ANTIVIRAL PROPHYLAXIS
     Route: 030
     Dates: start: 20170106, end: 20170106
  5. SYNAGIS [Suspect]
     Active Substance: PALIVIZUMAB
     Indication: ANTIVIRAL PROPHYLAXIS
     Route: 030
  6. SYNAGIS [Suspect]
     Active Substance: PALIVIZUMAB
     Indication: TRACHEOSTOMY
     Route: 030
  7. SYNAGIS [Suspect]
     Active Substance: PALIVIZUMAB
     Indication: PREMATURE BABY
     Route: 030
     Dates: start: 20170106, end: 20170106
  8. D FLUORETTEN (NON-ABBVIE) [Concomitant]
     Indication: PRODUCT USED FOR UNKNOWN INDICATION
     Route: 048
  9. SYNAGIS [Suspect]
     Active Substance: PALIVIZUMAB
     Indication: CHOANAL STENOSIS
     Route: 030
     Dates: start: 20170106, end: 20170106
  10. SYNAGIS [Suspect]
     Active Substance: PALIVIZUMAB
     Indication: CONGENITAL JAW MALFORMATION
     Route: 030
     Dates: start: 20170106, end: 20170106
  11. SYNAGIS [Suspect]
     Active Substance: PALIVIZUMAB
     Indication: PREMATURE BABY
     Route: 030
  12. SYNAGIS [Suspect]
     Active Substance: PALIVIZUMAB
     Indication: CHOANAL STENOSIS
     Route: 030
  13. FERRO SANOL (NON-ABBVIE) [Concomitant]
     Indication: PRODUCT USED FOR UNKNOWN INDICATION
     Route: 048
  14. SYNAGIS [Suspect]
     Active Substance: PALIVIZUMAB
     Indication: CHOANAL STENOSIS
     Route: 030
     Dates: start: 20161201, end: 20161201
  15. SYNAGIS [Suspect]
     Active Substance: PALIVIZUMAB
     Indication: CONGENITAL JAW MALFORMATION
     Route: 030
     Dates: start: 20161201, end: 20161201
  16. SYNAGIS [Suspect]
     Active Substance: PALIVIZUMAB
     Indication: TRACHEOSTOMY
     Route: 030
     Dates: start: 20170106, end: 20170106
  17. SYNAGIS [Suspect]
     Active Substance: PALIVIZUMAB
     Indication: CHOANAL STENOSIS
     Route: 030
     Dates: start: 20161028, end: 20161028
  18. SYNAGIS [Suspect]
     Active Substance: PALIVIZUMAB
     Indication: ANTIVIRAL PROPHYLAXIS
     Route: 030
     Dates: start: 20161201, end: 20161201
  19. SYNAGIS [Suspect]
     Active Substance: PALIVIZUMAB
     Indication: TRACHEOSTOMY
     Route: 030
     Dates: start: 20161028, end: 20161028
  20. SYNAGIS [Suspect]
     Active Substance: PALIVIZUMAB
     Indication: CONGENITAL JAW MALFORMATION
     Route: 030
     Dates: start: 20161028, end: 20161028
  21. SYNAGIS [Suspect]
     Active Substance: PALIVIZUMAB
     Indication: PREMATURE BABY
     Route: 030
     Dates: start: 20161201, end: 20161201
  22. SYNAGIS [Suspect]
     Active Substance: PALIVIZUMAB
     Indication: CONGENITAL JAW MALFORMATION
     Route: 030

REACTIONS (5)
  - Respiratory failure [Recovering/Resolving]
  - Systemic inflammatory response syndrome [Recovering/Resolving]
  - Respiratory syncytial virus bronchitis [Recovering/Resolving]
  - Hypoxia [Recovering/Resolving]
  - Respiratory syncytial virus infection [Recovering/Resolving]

NARRATIVE: CASE EVENT DATE: 20161226
